FAERS Safety Report 8448098-8 (Version None)
Quarter: 2012Q2

REPORT INFORMATION
  Report Type: 
  Country: None (occurrence: None)
  Receive Date: 20120619
  Receipt Date: 20120608
  Transmission Date: 20120825
  Serious: Yes (Other)
  Sender: FDA-Public Use
  Company Number: US-ELI_LILLY_AND_COMPANY-US201206002770

PATIENT

DRUGS (1)
  1. HUMALOG [Suspect]
     Dosage: UNK, UNKNOWN

REACTIONS (4)
  - HYPOGLYCAEMIA [None]
  - ANAEMIA [None]
  - MENTAL STATUS CHANGES [None]
  - GASTROINTESTINAL HAEMORRHAGE [None]
